FAERS Safety Report 17599810 (Version 1)
Quarter: 2020Q1

REPORT INFORMATION
  Report Type: Report from Study
  Country: IT (occurrence: IT)
  Receive Date: 20200330
  Receipt Date: 20200330
  Transmission Date: 20200409
  Serious: Yes (Hospitalization)
  Sender: FDA-Public Use
  Company Number: IT-TEVA-2020-IT-1212938

PATIENT
  Age: 0 Day
  Sex: Female

DRUGS (11)
  1. COLCHICINA LIRCA 1 MG COMPRESSE [Suspect]
     Active Substance: COLCHICINE
     Indication: ARTHRITIS
     Dosage: 1 DF
     Route: 048
  2. ROSUVASTATIN CALCIUM. [Concomitant]
     Active Substance: ROSUVASTATIN CALCIUM
  3. RETACRIT 3 000 IU/0.9 ML SOLUTION FOR INJECTION IN PRE-FILLED SYRINGE [Concomitant]
     Dosage: FORM STRENGTH : 3 000 IU/0.9 ML
  4. ALLOPURINOL. [Suspect]
     Active Substance: ALLOPURINOL
     Indication: GOUT
     Dosage: 1 DF
     Route: 048
  5. FOLIC ACID. [Concomitant]
     Active Substance: FOLIC ACID
  6. DOBETIN 500 MICROGRAMMI/ML SOLUZIONE INIETTABILE [Concomitant]
     Dosage: STRENGTH : 500 MICROGRAMS / ML
  7. NEBIVOLOL. [Concomitant]
     Active Substance: NEBIVOLOL
  8. PLAUNAC 40 MG COMPRESSE RIVESTITE CON FILM [Concomitant]
  9. GLUCOPHAGE [Concomitant]
     Active Substance: METFORMIN HYDROCHLORIDE
  10. OMEPRAZOLE. [Concomitant]
     Active Substance: OMEPRAZOLE
  11. LAMIVUDINE. [Concomitant]
     Active Substance: LAMIVUDINE

REACTIONS (4)
  - Hyperpyrexia [Recovering/Resolving]
  - Dyspnoea [Recovering/Resolving]
  - Anaemia [Recovering/Resolving]
  - Tremor [Recovering/Resolving]

NARRATIVE: CASE EVENT DATE: 20191202
